FAERS Safety Report 5452018-8 (Version None)
Quarter: 2007Q3

REPORT INFORMATION
  Report Type: 
  Country: None (occurrence: None)
  Receive Date: 20070912
  Receipt Date: 20070828
  Transmission Date: 20080115
  Serious: Yes (Hospitalization)
  Sender: FDA-Public Use
  Company Number: S07-FRA-03626-01

PATIENT
  Age: 78 Year
  Sex: Female

DRUGS (6)
  1. ESCITALOPRAM [Suspect]
     Indication: DEPRESSION
     Dates: start: 20050701, end: 20070701
  2. PANTOPRAZOLE SODIUM [Suspect]
     Indication: ULCER
     Dosage: 20 MG QD PO
     Route: 048
     Dates: start: 20060101, end: 20070501
  3. CELIPROLOL [Concomitant]
  4. INDAPAMIDE [Concomitant]
  5. SIMVASTATIN [Concomitant]
  6. DI-GESIC [Concomitant]

REACTIONS (2)
  - FACE OEDEMA [None]
  - LIP OEDEMA [None]
